FAERS Safety Report 9997553 (Version 1)
Quarter: 2014Q1

REPORT INFORMATION
  Report Type: Spontaneous
  Country: DE (occurrence: DE)
  Receive Date: 20140311
  Receipt Date: 20140311
  Transmission Date: 20141002
  Serious: Yes (Other)
  Sender: FDA-Public Use
  Company Number: GXKR2014DE001129

PATIENT
  Sex: 0

DRUGS (2)
  1. LAMOTRIGINE [Suspect]
     Indication: EPILEPSY
     Dosage: 100 [MG/D ]
     Route: 064
     Dates: start: 20111010, end: 20120721
  2. FOLSAEURE [Concomitant]
     Indication: MATERNAL THERAPY TO ENHANCE FOETAL LUNG MATURITY
     Dosage: 0.4 [MG/D ]
     Route: 064

REACTIONS (2)
  - Liver disorder [Recovered/Resolved]
  - Feeding disorder neonatal [Recovered/Resolved]
